FAERS Safety Report 22361585 (Version 1)
Quarter: 2023Q2

REPORT INFORMATION
  Report Type: Spontaneous
  Country: US (occurrence: US)
  Receive Date: 20230524
  Receipt Date: 20230524
  Transmission Date: 20230721
  Serious: Yes (Other)
  Sender: FDA-Public Use
  Company Number: US-FreseniusKabi-FK202306806

PATIENT
  Age: 24 Year
  Sex: Female

DRUGS (2)
  1. DIPHENHYDRAMINE HYDROCHLORIDE [Suspect]
     Active Substance: DIPHENHYDRAMINE HYDROCHLORIDE
     Indication: Nausea
     Dosage: ROA : INTRAVENOUS VIA BROVAIC (CENTRAL VENOUS LINE)??50 MG AS NEEDED EVERY 6 HOURS?FORM OF ADMIN: IN
     Route: 042
     Dates: start: 20230511, end: 20230511
  2. DIPHENHYDRAMINE HYDROCHLORIDE [Suspect]
     Active Substance: DIPHENHYDRAMINE HYDROCHLORIDE
     Indication: Hypersensitivity

REACTIONS (3)
  - Wrong technique in product usage process [Recovered/Resolved]
  - Catheter site haemorrhage [Recovered/Resolved]
  - Vascular device occlusion [Recovered/Resolved]

NARRATIVE: CASE EVENT DATE: 20230511
